FAERS Safety Report 17047612 (Version 1)
Quarter: 2019Q4

REPORT INFORMATION
  Report Type: Spontaneous
  Country: US (occurrence: US)
  Receive Date: 20191019
  Receipt Date: 20191019
  Transmission Date: 20200122
  Serious: No
  Sender: FDA-Public Use
  Company Number: None

PATIENT
  Age: 64 Year
  Sex: Female

DRUGS (1)
  1. MAVYRET [Suspect]
     Active Substance: GLECAPREVIR\PIBRENTASVIR
     Dosage: ?          OTHER DOSE:100-40;?
     Route: 048
     Dates: start: 20190613

REACTIONS (7)
  - Hyperphagia [None]
  - Nightmare [None]
  - Rash pruritic [None]
  - Acne [None]
  - Insomnia [None]
  - Hair texture abnormal [None]
  - Weight increased [None]

NARRATIVE: CASE EVENT DATE: 20191019
